FAERS Safety Report 7643649-5 (Version None)
Quarter: 2011Q3

REPORT INFORMATION
  Report Type: 
  Country: None (occurrence: None)
  Receive Date: 20110722
  Receipt Date: 20110705
  Transmission Date: 20111222
  Serious: Yes (Hospitalization, Other)
  Sender: FDA-Public Use
  Company Number: DAV-AE-MTX-11-042

PATIENT
  Age: 81 Year
  Sex: Female
  Weight: 45.8133 kg

DRUGS (15)
  1. METHOTREXATE [Suspect]
     Indication: RHEUMATOID ARTHRITIS
     Dosage: 4MG WK ORAL
     Route: 048
     Dates: start: 20100101
  2. METALCAPTASE [Concomitant]
  3. ALENDRONATE SODIUM [Concomitant]
  4. RIMATIL [Concomitant]
  5. SELBEX [Concomitant]
  6. PRAVASTATIN SODIUM [Concomitant]
  7. ADALAT [Concomitant]
  8. PLETAL [Concomitant]
  9. VOLTAREN [Concomitant]
  10. ETODOLAC [Concomitant]
  11. LANSOPRAZOLE [Concomitant]
  12. LASIX [Concomitant]
  13. LEVOFLOXACIN [Concomitant]
  14. FOLIC ACID [Concomitant]
  15. ADOFFED [Concomitant]

REACTIONS (1)
  - LYMPHOMA [None]
